FAERS Safety Report 22372557 (Version 2)
Quarter: 2024Q3

REPORT INFORMATION
  Report Type: Spontaneous
  Country: ES (occurrence: ES)
  Receive Date: 20230526
  Receipt Date: 20240726
  Transmission Date: 20241016
  Serious: Yes (Hospitalization)
  Sender: RANBAXY
  Company Number: ES-SUN PHARMACEUTICAL INDUSTRIES LTD-2023RR-390802

PATIENT
  Age: 83 Year
  Sex: Female

DRUGS (4)
  1. AZITHROMYCIN [Suspect]
     Active Substance: AZITHROMYCIN
     Indication: Respiratory tract infection
     Dosage: 500 MILLIGRAM
     Route: 065
     Dates: start: 20190615, end: 20190617
  2. METAMIZOL [Concomitant]
     Active Substance: METAMIZOLE SODIUM
     Indication: Osteoarthritis
     Dosage: 575 MILLIGRAM
     Route: 065
     Dates: start: 20180829
  3. ZOLPIDEM TARTRATE [Concomitant]
     Active Substance: ZOLPIDEM TARTRATE
     Indication: Insomnia
     Dosage: 10 MILLIGRAM
     Route: 065
     Dates: start: 20091215
  4. SIMVASTATINA ALMUS [Concomitant]
     Indication: Lipid metabolism disorder
     Dosage: 10 MILLIGRAM
     Route: 065
     Dates: start: 20131112

REACTIONS (1)
  - Diarrhoea [Recovered/Resolved]
